FAERS Safety Report 26001191 (Version 1)
Quarter: 2025Q4

REPORT INFORMATION
  Report Type: Spontaneous
  Country: TH (occurrence: TH)
  Receive Date: 20251105
  Receipt Date: 20251105
  Transmission Date: 20260117
  Serious: Yes (Other)
  Sender: PFIZER
  Company Number: TH-PFIZER INC-PV202500129041

PATIENT
  Age: 54 Year
  Sex: Male

DRUGS (2)
  1. LORLATINIB [Suspect]
     Active Substance: LORLATINIB
     Indication: Non-small cell lung cancer
     Dosage: 100 MG (1 TAB) DAILY
     Route: 048
     Dates: start: 20250612
  2. LORLATINIB [Suspect]
     Active Substance: LORLATINIB
     Dosage: 25MG 2 TABS PER DAY
     Route: 048
     Dates: start: 202508

REACTIONS (1)
  - Hallucination [Recovered/Resolved]
